FAERS Safety Report 7436202-X (Version None)
Quarter: 2011Q2

REPORT INFORMATION
  Report Type: 
  Country: None (occurrence: None)
  Receive Date: 20110425
  Receipt Date: 20110415
  Transmission Date: 20111010
  Serious: Yes (Other)
  Sender: FDA-Public Use
  Company Number: US-RB-025987-11

PATIENT
  Sex: Male

DRUGS (2)
  1. SUBUTEX [Suspect]
     Indication: PRODUCT USED FOR UNKNOWN INDICATION
     Dosage: DOSING INFORMATION UNKNOWN
     Route: 064
     Dates: end: 20090101
  2. SUBUTEX [Suspect]
     Dosage: DOSAGE INFORMATION UNKNOWN
     Route: 063
     Dates: start: 20090101

REACTIONS (6)
  - PREMATURE BABY [None]
  - DRUG WITHDRAWAL SYNDROME NEONATAL [None]
  - DRUG EXPOSURE VIA BREAST MILK [None]
  - DRUG EXPOSURE DURING PREGNANCY [None]
  - DEVELOPMENTAL DELAY [None]
  - RESPIRATORY DISORDER [None]
